FAERS Safety Report 20735119 (Version 3)
Quarter: 2022Q3

REPORT INFORMATION
  Report Type: Spontaneous
  Country: US (occurrence: US)
  Receive Date: 20220421
  Receipt Date: 20220810
  Transmission Date: 20221026
  Serious: Yes (Other)
  Sender: FDA-Public Use
  Company Number: US-PFIZER INC-202200597446

PATIENT
  Age: 76 Year
  Sex: Male

DRUGS (7)
  1. VYNDAMAX [Suspect]
     Active Substance: TAFAMIDIS
     Indication: Cardiac amyloidosis
     Dosage: 61 MG, DAILY
     Route: 048
     Dates: start: 20220225
  2. VYNDAMAX [Suspect]
     Active Substance: TAFAMIDIS
     Dosage: 61 MG, DAILY
  3. LOSARTAN [Concomitant]
     Active Substance: LOSARTAN
     Indication: Blood pressure measurement
     Dosage: 100 MG, DAILY
     Route: 048
  4. NIFEDIPINE [Concomitant]
     Active Substance: NIFEDIPINE
     Indication: Blood pressure measurement
     Dosage: 30 MG, DAILY
     Route: 048
  5. BUMETANIDE [Concomitant]
     Active Substance: BUMETANIDE
     Indication: Fluid retention
     Dosage: 1 MG, DAILY
     Route: 048
  6. MITIGARE [Concomitant]
     Active Substance: COLCHICINE
     Indication: Gout
     Dosage: 0.6 MG, 2X/DAY
     Route: 048
  7. TRAZODONE [Concomitant]
     Active Substance: TRAZODONE HYDROCHLORIDE
     Indication: Sleep disorder
     Dosage: 50 MG, DAILY

REACTIONS (4)
  - Erectile dysfunction [Not Recovered/Not Resolved]
  - Chills [Not Recovered/Not Resolved]
  - Nervousness [Not Recovered/Not Resolved]
  - Penile size reduced [Not Recovered/Not Resolved]

NARRATIVE: CASE EVENT DATE: 20220201
